FAERS Safety Report 8269224-X (Version None)
Quarter: 2012Q2

REPORT INFORMATION
  Report Type: 
  Country: None (occurrence: None)
  Receive Date: 20120409
  Receipt Date: 20120328
  Transmission Date: 20120825
  Serious: Yes (Hospitalization, Other)
  Sender: FDA-Public Use
  Company Number: JP-BRISTOL-MYERS SQUIBB COMPANY-16491219

PATIENT
  Age: 39 Year
  Sex: Female

DRUGS (5)
  1. PIRARUBICIN [Suspect]
     Indication: CERVIX CARCINOMA
     Dosage: DISCONTINUED AT 6GY RADIATION DOSE
  2. CARBOPLATIN [Suspect]
     Indication: CERVIX CARCINOMA
  3. PACLITAXEL [Suspect]
     Indication: CERVIX CARCINOMA
  4. CISPLATIN [Suspect]
     Indication: CERVIX CARCINOMA
     Dosage: DISCONTINUED AT 6GY RADIATION DOSE
  5. VEPESID [Suspect]
     Indication: CERVIX CARCINOMA
     Dosage: DISCONTINUED AT 6GY RADIATION DOSE
     Route: 048

REACTIONS (3)
  - FALL [None]
  - NEOPLASM MALIGNANT [None]
  - POSTERIOR REVERSIBLE ENCEPHALOPATHY SYNDROME [None]
